FAERS Safety Report 9424626 (Version 1)
Quarter: 2013Q3

REPORT INFORMATION
  Report Type: Spontaneous
  Country: US (occurrence: None)
  Receive Date: 20130726
  Receipt Date: 20130726
  Transmission Date: 20140515
  Serious: Yes (Other)
  Sender: FDA-Public Use
  Company Number: None

PATIENT
  Age: 28 Year
  Sex: Female
  Weight: 61.24 kg

DRUGS (1)
  1. ZIPRASIDONE [Suspect]
     Indication: ANXIETY
     Dosage: 40 2 DAILY PO
     Route: 048
     Dates: start: 20130710, end: 20130711

REACTIONS (4)
  - Overdose [None]
  - Swollen tongue [None]
  - Pharyngeal oedema [None]
  - Trismus [None]
